FAERS Safety Report 15142245 (Version 1)
Quarter: 2018Q3

REPORT INFORMATION
  Report Type: Spontaneous
  Country: US (occurrence: US)
  Receive Date: 20180713
  Receipt Date: 20180713
  Transmission Date: 20181010
  Serious: No
  Sender: FDA-Public Use
  Company Number: US-GLAXOSMITHKLINE-US2018122199

PATIENT
  Sex: Female

DRUGS (2)
  1. BREO ELLIPTA [Suspect]
     Active Substance: FLUTICASONE FUROATE\VILANTEROL TRIFENATATE
     Indication: PRODUCT USED FOR UNKNOWN INDICATION
     Dosage: UNK
     Dates: start: 20180629
  2. VENTOLIN [Suspect]
     Active Substance: ALBUTEROL SULFATE
     Indication: PRODUCT USED FOR UNKNOWN INDICATION
     Dosage: UNK

REACTIONS (9)
  - Heart rate increased [Unknown]
  - Hypersensitivity [Unknown]
  - Chest discomfort [Unknown]
  - Hypoaesthesia [Unknown]
  - Wheezing [Unknown]
  - Blood pressure increased [Unknown]
  - Dizziness [Unknown]
  - Underdose [Unknown]
  - Tremor [Unknown]

NARRATIVE: CASE EVENT DATE: 20180709
